FAERS Safety Report 13841464 (Version 1)
Quarter: 2017Q3

REPORT INFORMATION
  Report Type: Spontaneous
  Country: US (occurrence: US)
  Receive Date: 20170807
  Receipt Date: 20170807
  Transmission Date: 20171127
  Serious: No
  Sender: FDA-Public Use
  Company Number: PHEH2017US023838

PATIENT
  Age: 16 Year
  Sex: Female

DRUGS (1)
  1. TRI-ESTARYLLA [Suspect]
     Active Substance: ETHINYL ESTRADIOL\NORGESTIMATE
     Indication: CONTRACEPTION
     Dosage: UNK
     Route: 065

REACTIONS (3)
  - Breast tenderness [Unknown]
  - Breast mass [Unknown]
  - Breast pain [Unknown]

NARRATIVE: CASE EVENT DATE: 20170730
